FAERS Safety Report 9371865 (Version 1)
Quarter: 2013Q2

REPORT INFORMATION
  Report Type: Report from Study
  Country: US (occurrence: US)
  Receive Date: 20130627
  Receipt Date: 20130627
  Transmission Date: 20140414
  Serious: Yes (Death)
  Sender: FDA-Public Use
  Company Number: US-MYLANLABS-2012S1009295

PATIENT
  Age: 51 Year
  Sex: Male

DRUGS (3)
  1. CLOZAPINE TABLETS [Suspect]
     Route: 048
     Dates: start: 20110717, end: 20120124
  2. BUSPAR [Suspect]
     Route: 048
  3. HALDOL [Suspect]
     Route: 048

REACTIONS (2)
  - Decubitus ulcer [Fatal]
  - Infection [Fatal]
